FAERS Safety Report 15833151 (Version 2)
Quarter: 2021Q3

REPORT INFORMATION
  Report Type: Report from Study
  Country: US (occurrence: US)
  Receive Date: 20190116
  Receipt Date: 20210824
  Transmission Date: 20211014
  Serious: Yes (Hospitalization, Other)
  Sender: FDA-Public Use
  Company Number: US-ASTELLAS-2018US045442

PATIENT
  Age: 76 Year
  Sex: Male

DRUGS (1)
  1. ENZALUTAMIDE [Suspect]
     Active Substance: ENZALUTAMIDE
     Indication: PROSTATE CANCER
     Route: 048
     Dates: start: 20180920

REACTIONS (6)
  - Respiratory failure [Unknown]
  - Oxygen saturation abnormal [Unknown]
  - Haematuria [Unknown]
  - Pneumonia [Unknown]
  - Pyrexia [Unknown]
  - Confusional state [Unknown]

NARRATIVE: CASE EVENT DATE: 20181209
